FAERS Safety Report 5197357-3 (Version None)
Quarter: 2006Q4

REPORT INFORMATION
  Report Type: 
  Country: None (occurrence: None)
  Receive Date: 20060929
  Receipt Date: 20060605
  Transmission Date: 20070319
  Serious: No
  Sender: FDA-Public Use
  Company Number: 06P-131-0335166-00

PATIENT
  Age: 52 Year
  Sex: Female

DRUGS (5)
  1. DEPAKOTE ER [Suspect]
     Indication: BIPOLAR I DISORDER
     Dosage: 1500 MG, PER ORAL
     Route: 048
     Dates: start: 20060401, end: 20060501
  2. DEPAKOTE ER [Suspect]
     Indication: BIPOLAR I DISORDER
     Dosage: 1500 MG, PER ORAL
     Route: 048
     Dates: start: 20060501
  3. HALOPERIDOL [Concomitant]
  4. DIPHENHYDRAMINE HYDROCHLORIDE [Concomitant]
  5. CLONAZEPAM [Concomitant]

REACTIONS (1)
  - PANCREATITIS [None]
